FAERS Safety Report 9260732 (Version 1)
Quarter: 2013Q2

REPORT INFORMATION
  Report Type: Spontaneous
  Country: US (occurrence: US)
  Receive Date: 20130429
  Receipt Date: 20130429
  Transmission Date: 20140414
  Serious: Yes (Other)
  Sender: FDA-Public Use
  Company Number: US-ELI_LILLY_AND_COMPANY-US201304007083

PATIENT
  Sex: Female

DRUGS (4)
  1. PROZAC [Suspect]
     Dosage: 1 DF, UNKNOWN
  2. VICODIN [Concomitant]
     Dosage: 1 DF, UNKNOWN
  3. KLONOPIN [Concomitant]
     Dosage: 1 DF, UNKNOWN
  4. ANTIHISTAMINE ALLERGY RELIEF [Concomitant]
     Dosage: 1 DF, UNKNOWN

REACTIONS (1)
  - Violence-related symptom [Unknown]
